FAERS Safety Report 26083890 (Version 2)
Quarter: 2025Q4

REPORT INFORMATION
  Report Type: Spontaneous
  Country: JP (occurrence: JP)
  Receive Date: 20251124
  Receipt Date: 20251204
  Transmission Date: 20260118
  Serious: Yes (Hospitalization)
  Sender: ROCHE
  Company Number: JP-CHUGAI-2025032307

PATIENT
  Age: 64 Year
  Sex: Female
  Weight: 30.6 kg

DRUGS (7)
  1. PHESGO [Suspect]
     Active Substance: HYALURONIDASE-ZZXF\PERTUZUMAB\TRASTUZUMAB
     Indication: Breast cancer
     Dosage: 10 MILLILITER, ONCE/3WEEKS
     Route: 058
     Dates: start: 20241210, end: 2025
  2. PHESGO [Suspect]
     Active Substance: HYALURONIDASE-ZZXF\PERTUZUMAB\TRASTUZUMAB
     Dosage: 10 MILLILITER, ONCE/3WEEKS
     Route: 058
     Dates: start: 20240408
  3. MS CONTIN [Concomitant]
     Active Substance: MORPHINE SULFATE
     Dates: end: 20251110
  4. LASIX [Concomitant]
     Active Substance: FUROSEMIDE
  5. SPIRONOLACTONE [Concomitant]
     Active Substance: SPIRONOLACTONE
  6. LANSOPRAZOLE [Concomitant]
     Active Substance: LANSOPRAZOLE
  7. BROTIZOLAM [Concomitant]
     Active Substance: BROTIZOLAM

REACTIONS (3)
  - Clostridium difficile colitis [Recovered/Resolved]
  - Vomiting [Unknown]
  - Dehydration [Unknown]

NARRATIVE: CASE EVENT DATE: 20250930
